FAERS Safety Report 12028931 (Version 1)
Quarter: 2016Q1

REPORT INFORMATION
  Report Type: Report from Study
  Country: US (occurrence: US)
  Receive Date: 20160207
  Receipt Date: 20160207
  Transmission Date: 20160526
  Serious: No
  Sender: FDA-Public Use
  Company Number: US-ABBVIE-15K-163-1497554-00

PATIENT
  Age: 41 Year
  Sex: Female

DRUGS (1)
  1. HUMIRA [Suspect]
     Active Substance: ADALIMUMAB
     Indication: PSORIASIS
     Route: 058
     Dates: start: 20150419, end: 20150701

REACTIONS (4)
  - Oral herpes [Unknown]
  - Cervical polyp [Unknown]
  - Mammoplasty [Unknown]
  - Uterine polyp [Unknown]

NARRATIVE: CASE EVENT DATE: 201505
